FAERS Safety Report 8275978-9 (Version None)
Quarter: 2012Q2

REPORT INFORMATION
  Report Type: 
  Country: None (occurrence: None)
  Receive Date: 20120412
  Receipt Date: 20120409
  Transmission Date: 20120825
  Serious: No
  Sender: FDA-Public Use
  Company Number: US-PFIZER INC-2012048796

PATIENT
  Sex: Female
  Weight: 70.295 kg

DRUGS (6)
  1. LIPITOR [Suspect]
     Dosage: 40 MG, 1X/DAY
     Route: 048
  2. POTASSIUM BICARBONATE [Concomitant]
     Dosage: UNK
  3. PLAVIX [Concomitant]
     Dosage: 75 MG, UNK
  4. LIPITOR [Suspect]
     Indication: BLOOD CHOLESTEROL INCREASED
     Dosage: 10 MG, 1X/DAY
     Route: 048
  5. FUROSEMIDE [Concomitant]
     Dosage: UNK
  6. COREX [Concomitant]
     Dosage: 12.5 MG, 2X/DAY

REACTIONS (8)
  - BLOOD CHOLESTEROL INCREASED [None]
  - HYPOTENSION [None]
  - BODY HEIGHT DECREASED [None]
  - DYSGEUSIA [None]
  - ANXIETY [None]
  - SALIVA ALTERED [None]
  - DRUG INEFFECTIVE [None]
  - FEAR [None]
